FAERS Safety Report 8880313 (Version 1)
Quarter: 2012Q4

REPORT INFORMATION
  Report Type: 
  Country: CA (occurrence: CA)
  Receive Date: 20121101
  Receipt Date: 20121101
  Transmission Date: 20130627
  Serious: Yes (Other)
  Sender: FDA-Public Use
  Company Number: CA-PFIZER INC-2012251910

PATIENT
  Sex: Female
  Weight: 70 kg

DRUGS (9)
  1. DILANTIN [Suspect]
     Indication: SEIZURES
     Dosage: 200 mg (2x 100mg), 1x/day
     Route: 048
     Dates: start: 20120830, end: 20120910
  2. DILANTIN [Suspect]
     Dosage: 100 mg, 1x/day
     Dates: start: 20120910, end: 20120914
  3. DILANTIN [Suspect]
     Dosage: 200 mg, 1x/day
     Route: 048
     Dates: start: 20120914, end: 20120926
  4. DILANTIN [Suspect]
     Dosage: UNK
  5. CALCIUM [Concomitant]
     Dosage: 500 mg, 1x/day
     Dates: start: 20120830
  6. LASIX [Concomitant]
     Dosage: 40 mg in AM
     Dates: start: 20120830
  7. PANTOLOC ^BYK MADAUS^ [Concomitant]
     Dosage: 40 mg, AM
     Dates: start: 20120830
  8. K-DUR [Concomitant]
     Dosage: 10 mg, 1x/day
     Dates: start: 20120830
  9. FLORASTOR [Concomitant]
     Dosage: 250 mg, 2x/day

REACTIONS (1)
  - Anticonvulsant drug level below therapeutic [Unknown]
